FAERS Safety Report 20475435 (Version 1)
Quarter: 2022Q1

REPORT INFORMATION
  Report Type: Spontaneous
  Country: US (occurrence: None)
  Receive Date: 20220214
  Receipt Date: 20220214
  Transmission Date: 20220423
  Serious: Yes (Other)
  Sender: FDA-Public Use
  Company Number: None

PATIENT
  Age: 84 Year
  Sex: Male
  Weight: 78.3 kg

DRUGS (2)
  1. CEFEPIME [Suspect]
     Active Substance: CEFEPIME HYDROCHLORIDE
     Indication: Sepsis
     Dosage: FREQUENCY : TWICE A DAY;?
     Route: 042
     Dates: start: 20211209, end: 20211213
  2. CEFEPIME [Concomitant]
     Active Substance: CEFEPIME HYDROCHLORIDE
     Dates: start: 20211209, end: 20211217

REACTIONS (4)
  - Encephalopathy [None]
  - Neurotoxicity [None]
  - Acute kidney injury [None]
  - Hyponatraemia [None]

NARRATIVE: CASE EVENT DATE: 20211211
